FAERS Safety Report 8014028-6 (Version None)
Quarter: 2011Q4

REPORT INFORMATION
  Report Type: 
  Country: None (occurrence: None)
  Receive Date: 20111229
  Receipt Date: 20111221
  Transmission Date: 20120403
  Serious: Yes (Hospitalization, Other)
  Sender: FDA-Public Use
  Company Number: US-PFIZER INC-2011309679

PATIENT
  Sex: Female
  Weight: 83.447 kg

DRUGS (4)
  1. EFFEXOR XR [Suspect]
     Indication: PAIN
  2. EFFEXOR XR [Suspect]
     Indication: FIBROMYALGIA
  3. EFFEXOR XR [Suspect]
     Indication: MOOD SWINGS
     Dosage: 225 MG, 1X/DAY
     Route: 048
     Dates: end: 20111208
  4. XANAX [Suspect]
     Dosage: UNK
     Dates: end: 20111208

REACTIONS (9)
  - WITHDRAWAL SYNDROME [None]
  - NAUSEA [None]
  - FEELING ABNORMAL [None]
  - DIZZINESS [None]
  - PALPITATIONS [None]
  - HOT FLUSH [None]
  - SUICIDAL IDEATION [None]
  - GASTROOESOPHAGEAL REFLUX DISEASE [None]
  - FEELING COLD [None]
